FAERS Safety Report 7605582-4 (Version None)
Quarter: 2011Q3

REPORT INFORMATION
  Report Type: 
  Country: None (occurrence: None)
  Receive Date: 20110712
  Receipt Date: 20110712
  Transmission Date: 20111222
  Serious: Yes (Hospitalization)
  Sender: FDA-Public Use
  Company Number: None

PATIENT
  Age: 78 Year
  Sex: Male
  Weight: 100 kg

DRUGS (1)
  1. DEXAMETHASONE [Suspect]
     Indication: WALDENSTROM'S MACROGLOBULINAEMIA
     Dosage: 10MG ONCE IV
     Route: 042
     Dates: start: 20110608

REACTIONS (2)
  - MENTAL STATUS CHANGES [None]
  - CONFUSIONAL STATE [None]
